FAERS Safety Report 5457249-9 (Version None)
Quarter: 2007Q3

REPORT INFORMATION
  Report Type: 
  Country: None (occurrence: None)
  Receive Date: 20070918
  Receipt Date: 20070702
  Transmission Date: 20080115
  Serious: Yes (Hospitalization)
  Sender: FDA-Public Use
  Company Number: US-ASTRAZENECA-2007UW02054

PATIENT
  Age: 43 Year
  Sex: Male
  Weight: 90.9 kg

DRUGS (5)
  1. SEROQUEL [Suspect]
     Indication: BIPOLAR DISORDER
     Route: 048
     Dates: start: 20020101
  2. SEROQUEL [Suspect]
     Indication: POST-TRAUMATIC STRESS DISORDER
     Route: 048
     Dates: start: 20020101
  3. ZYPREXA/SYMBYAX (OLANZAPINE) [Concomitant]
  4. DEPAKOTE [Concomitant]
  5. LITHIUM CARBONATE [Concomitant]

REACTIONS (2)
  - DIABETES MELLITUS [None]
  - SUICIDE ATTEMPT [None]
